FAERS Safety Report 14571356 (Version 1)
Quarter: 2018Q1

REPORT INFORMATION
  Report Type: Report from Study
  Country: US (occurrence: US)
  Receive Date: 20180226
  Receipt Date: 20180226
  Transmission Date: 20180509
  Serious: Yes (Death, Other)
  Sender: FDA-Public Use
  Company Number: US-GILEAD-2017-0309370

PATIENT
  Age: 2 Year
  Sex: Male

DRUGS (13)
  1. REVATIO [Concomitant]
     Active Substance: SILDENAFIL CITRATE
  2. SYNAGIS [Concomitant]
     Active Substance: PALIVIZUMAB
  3. METOLAZONE. [Concomitant]
     Active Substance: METOLAZONE
  4. LASIX [Concomitant]
     Active Substance: FUROSEMIDE
  5. ALDACTONE [Concomitant]
     Active Substance: SPIRONOLACTONE
  6. KEPPRA [Concomitant]
     Active Substance: LEVETIRACETAM
  7. WARFARIN [Concomitant]
     Active Substance: WARFARIN
  8. AMBRISENTAN [Suspect]
     Active Substance: AMBRISENTAN
     Indication: PULMONARY ARTERIAL HYPERTENSION
     Dosage: 2.5 MG, QD
     Route: 065
     Dates: start: 20171116, end: 20180221
  9. AMBRISENTAN [Suspect]
     Active Substance: AMBRISENTAN
     Dosage: 5 MG, UNK
     Route: 065
  10. PANTOPRAZOLE [Concomitant]
     Active Substance: PANTOPRAZOLE
  11. ASPIRIN                            /00002701/ [Concomitant]
     Active Substance: ASPIRIN
  12. POTASSIUM CHLORIDE. [Concomitant]
     Active Substance: POTASSIUM CHLORIDE
  13. CLONIDINE. [Concomitant]
     Active Substance: CLONIDINE

REACTIONS (3)
  - Wrong technique in product usage process [Not Recovered/Not Resolved]
  - Off label use [Not Recovered/Not Resolved]
  - Death [Fatal]

NARRATIVE: CASE EVENT DATE: 20171116
